FAERS Safety Report 15538105 (Version 1)
Quarter: 2018Q4

REPORT INFORMATION
  Report Type: Spontaneous
  Country: US (occurrence: US)
  Receive Date: 20181022
  Receipt Date: 20181022
  Transmission Date: 20190205
  Serious: No
  Sender: FDA-Public Use
  Company Number: US-IPSEN BIOPHARMACEUTICALS, INC.-2018-15204

PATIENT
  Sex: Male
  Weight: 72 kg

DRUGS (18)
  1. MELATONIN [Concomitant]
     Active Substance: MELATONIN
  2. OMEGA3 [Concomitant]
  3. MEGACE ORAL SUS [Concomitant]
  4. K-PHOS [Concomitant]
     Active Substance: POTASSIUM PHOSPHATE, MONOBASIC
  5. ROXICODONE [Concomitant]
     Active Substance: OXYCODONE HYDROCHLORIDE
  6. XERMELO [Suspect]
     Active Substance: TELOTRISTAT ETHYL
     Indication: CARCINOID TUMOUR
     Route: 048
     Dates: start: 20170422
  7. SIMETHICONE (DIMETHICONE) [Concomitant]
     Active Substance: DIMETHICONE
  8. METAMUCIL [Concomitant]
     Active Substance: PLANTAGO SEED
  9. ZOFRAN [Concomitant]
     Active Substance: ONDANSETRON HYDROCHLORIDE
  10. MULTIVITAMIN [Concomitant]
     Active Substance: VITAMINS
  11. DIPHENOXYLATE-ATROPINE [Concomitant]
     Active Substance: ATROPINE\DIPHENOXYLATE
  12. QUESTRAN [Concomitant]
     Active Substance: CHOLESTYRAMINE
  13. FIBER [Concomitant]
     Active Substance: PSYLLIUM HUSK
  14. SANDOSTATIN [Concomitant]
     Active Substance: OCTREOTIDE ACETATE
  15. BELLADONNA-OPIUM [Concomitant]
  16. LOPERAMIDE [Concomitant]
     Active Substance: LOPERAMIDE
  17. TYLENOL [Concomitant]
     Active Substance: ACETAMINOPHEN
  18. CREON [Concomitant]
     Active Substance: PANCRELIPASE AMYLASE\PANCRELIPASE LIPASE\PANCRELIPASE PROTEASE

REACTIONS (1)
  - Blood pressure increased [Not Recovered/Not Resolved]
